FAERS Safety Report 15780345 (Version 1)
Quarter: 2019Q1

REPORT INFORMATION
  Report Type: Spontaneous
  Country: GB (occurrence: GB)
  Receive Date: 20190102
  Receipt Date: 20190102
  Transmission Date: 20190417
  Serious: Yes (Other)
  Sender: FDA-Public Use
  Company Number: GB-TEVA-2018-GB-992948

PATIENT
  Age: 83 Year
  Sex: Male
  Weight: 90.8 kg

DRUGS (8)
  1. ZEROBASE [Concomitant]
     Active Substance: MINERAL OIL\PARAFFIN
  2. FLUCLOXACILLIN SODIUM [Concomitant]
     Active Substance: FLUCLOXACILLIN SODIUM
  3. THIAMINE. [Concomitant]
     Active Substance: THIAMINE
  4. LANSOPRAZOLE. [Concomitant]
     Active Substance: LANSOPRAZOLE
  5. FOLIC ACID. [Concomitant]
     Active Substance: FOLIC ACID
  6. CYCLIZINE [Concomitant]
     Active Substance: CYCLIZINE
  7. NAPROXEN. [Suspect]
     Active Substance: NAPROXEN
     Indication: INFLAMMATION
     Dosage: 1000 MILLIGRAM DAILY;
     Route: 048
     Dates: start: 20181127
  8. HYPROMELLOSE [Concomitant]
     Active Substance: HYPROMELLOSES

REACTIONS (1)
  - Acute myocardial infarction [Recovering/Resolving]
